FAERS Safety Report 8814777 (Version 2)
Quarter: 2012Q4

REPORT INFORMATION
  Report Type: 
  Country: US (occurrence: US)
  Receive Date: 20120928
  Receipt Date: 20121001
  Transmission Date: 20130627
  Serious: Yes (Disabling)
  Sender: FDA-Public Use
  Company Number: US-PFIZER INC-2012239648

PATIENT
  Age: 56 Year
  Sex: Male
  Weight: 129 kg

DRUGS (9)
  1. LIPITOR [Suspect]
     Indication: BLOOD CHOLESTEROL ABNORMAL
     Dosage: UNK
     Dates: start: 2002
  2. TRILIPIX [Suspect]
     Indication: BLOOD CHOLESTEROL ABNORMAL
     Dosage: 135 mg, daily
  3. NIASPAN [Suspect]
     Indication: BLOOD CHOLESTEROL ABNORMAL
     Dosage: 500 mg, daily
  4. LISINOPRIL [Concomitant]
     Indication: HYPERTENSION
     Dosage: 10 mg, daily
  5. LISINOPRIL [Concomitant]
     Dosage: 5 mg, daily
  6. LEVOTHYROXINE [Concomitant]
     Indication: THYROID DISORDER
     Dosage: 50 ug, daily
  7. METFORMIN [Concomitant]
     Indication: DIABETES MELLITUS
     Dosage: 1000 mg, 2x/day
  8. GLIMEPIRIDE [Concomitant]
     Indication: DIABETES MELLITUS
     Dosage: 4 mg, 2x/day
  9. HUMALOG [Concomitant]
     Indication: DIABETES MELLITUS
     Dosage: 7 units in morning, 40 units in afternoon + 20 units in evening

REACTIONS (3)
  - Foot fracture [Unknown]
  - Neuropathy peripheral [Unknown]
  - Drug ineffective [Unknown]
